FAERS Safety Report 7381231-8 (Version None)
Quarter: 2011Q1

REPORT INFORMATION
  Report Type: 
  Country: None (occurrence: None)
  Receive Date: 20110329
  Receipt Date: 20110325
  Transmission Date: 20110831
  Serious: Yes (Hospitalization)
  Sender: FDA-Public Use
  Company Number: DE-ABBOTT-11P-062-0714352-00

PATIENT
  Sex: Female

DRUGS (3)
  1. MESALAMINE [Concomitant]
     Indication: CROHN'S DISEASE
  2. MORPHIUM [Concomitant]
     Indication: PRODUCT USED FOR UNKNOWN INDICATION
  3. HUMIRA [Suspect]
     Indication: CROHN'S DISEASE
     Route: 058
     Dates: start: 20080725

REACTIONS (1)
  - CARPAL TUNNEL SYNDROME [None]
